FAERS Safety Report 21630379 (Version 3)
Quarter: 2023Q2

REPORT INFORMATION
  Report Type: Spontaneous
  Country: JP (occurrence: JP)
  Receive Date: 20221122
  Receipt Date: 20230630
  Transmission Date: 20230722
  Serious: Yes (Other)
  Sender: FDA-Public Use
  Company Number: JP-SA-2022SA465614

PATIENT
  Age: 2 Year
  Sex: Male
  Weight: 13.7 kg

DRUGS (8)
  1. SABRIL [Suspect]
     Active Substance: VIGABATRIN
     Indication: Infantile spasms
     Dosage: 450 MG, BID
     Route: 048
     Dates: start: 20190205, end: 20210330
  2. SABRIL [Suspect]
     Active Substance: VIGABATRIN
     Dosage: 450 MG, BID
     Route: 048
     Dates: start: 20210616, end: 20220419
  3. SABRIL [Suspect]
     Active Substance: VIGABATRIN
     Dosage: 350 MG, BID
     Route: 048
     Dates: start: 20220420
  4. VALPROATE SODIUM [Concomitant]
     Active Substance: VALPROATE SODIUM
     Indication: Infantile spasms
     Dosage: DAILY DOSE: 330 MG
     Route: 048
     Dates: start: 201709
  5. TAURINE [Concomitant]
     Active Substance: TAURINE
     Indication: Prophylaxis
     Dosage: DAILY DOSE: 0.4 G
     Route: 048
     Dates: start: 20190719
  6. MAGNESIUM OXIDE [Concomitant]
     Active Substance: MAGNESIUM OXIDE
     Indication: Product used for unknown indication
     Dosage: DAILY DOSE: 0.4 G
     Route: 048
     Dates: end: 20190719
  7. LEVOCARNITINE HYDROCHLORIDE [Concomitant]
     Active Substance: LEVOCARNITINE HYDROCHLORIDE
     Indication: Prophylaxis
     Dosage: DAILY DOSE: 100 MG
     Route: 048
     Dates: end: 20190408
  8. VARICELLA-ZOSTER VIRUS STRAIN OKA/MERCK LIVE ANTIGEN [Concomitant]
     Active Substance: VARICELLA-ZOSTER VIRUS STRAIN OKA/MERCK LIVE ANTIGEN
     Indication: Immunisation
     Dosage: DAILY DOSE: 0.5 ML
     Route: 058
     Dates: start: 20191021, end: 20191021

REACTIONS (5)
  - Partial seizures [Recovering/Resolving]
  - Condition aggravated [Recovering/Resolving]
  - Exanthema subitum [Recovering/Resolving]
  - Alanine aminotransferase decreased [Recovered/Resolved]
  - Retinogram abnormal [Not Recovered/Not Resolved]

NARRATIVE: CASE EVENT DATE: 20190205
